FAERS Safety Report 5767867-6 (Version None)
Quarter: 2008Q2

REPORT INFORMATION
  Report Type: 
  Country: None (occurrence: None)
  Receive Date: 20080612
  Receipt Date: 20080605
  Transmission Date: 20081010
  Serious: Yes (Other)
  Sender: FDA-Public Use
  Company Number: GB-TEVA-172561ISR

PATIENT
  Age: 75 Year
  Sex: Female
  Weight: 61.82 kg

DRUGS (1)
  1. CLARITHROMYCIN [Suspect]
     Indication: BRONCHITIS
     Route: 048
     Dates: start: 20080218, end: 20080225

REACTIONS (1)
  - ANOSMIA [None]
